FAERS Safety Report 8824690 (Version 2)
Quarter: 2012Q4

REPORT INFORMATION
  Report Type: Report from Study
  Country: IT (occurrence: IT)
  Receive Date: 20121004
  Receipt Date: 20121017
  Transmission Date: 20130627
  Serious: Yes (Other)
  Sender: FDA-Public Use
  Company Number: IT-ACTELION-A-CH2012-72174

PATIENT
  Age: 8 Year
  Sex: Male
  Weight: 28.3 kg

DRUGS (1)
  1. ZAVESCA [Suspect]
     Indication: NIEMANN-PICK DISEASE
     Dosage: 300 mg, UNK
     Route: 048

REACTIONS (2)
  - Convulsion [Not Recovered/Not Resolved]
  - Tremor [Not Recovered/Not Resolved]
